FAERS Safety Report 4704849-7 (Version None)
Quarter: 2005Q3

REPORT INFORMATION
  Report Type: 
  Country: None (occurrence: None)
  Receive Date: 20050701
  Receipt Date: 20050628
  Transmission Date: 20060218
  Serious: Yes (Hospitalization)
  Sender: FDA-Public Use
  Company Number: FR-ABBOTT-05P-056-0304611-00

PATIENT
  Age: 80 Year
  Sex: Male
  Weight: 93 kg

DRUGS (10)
  1. ZECLAR [Suspect]
     Indication: PYREXIA
     Route: 048
     Dates: start: 20050421, end: 20050427
  2. ZECLAR [Suspect]
     Indication: DYSPNOEA
  3. CLAVULIN [Suspect]
     Indication: PYREXIA
     Route: 048
     Dates: start: 20050419, end: 20050427
  4. CLAVULIN [Suspect]
     Indication: DYSPNOEA
  5. PRAVASTATIN [Interacting]
     Indication: HYPERCHOLESTEROLAEMIA
     Route: 048
     Dates: end: 20050423
  6. IRBESARTAN [Concomitant]
     Indication: DRUG USE FOR UNKNOWN INDICATION
     Route: 048
     Dates: start: 20040101
  7. FUROSEMIDE [Concomitant]
     Indication: DRUG USE FOR UNKNOWN INDICATION
     Route: 048
     Dates: start: 20040101
  8. ASPIRIN [Concomitant]
     Indication: DRUG USE FOR UNKNOWN INDICATION
     Route: 048
  9. INSULIN HUMAN [Concomitant]
     Indication: DRUG USE FOR UNKNOWN INDICATION
  10. NEBIVOLOL [Concomitant]
     Indication: DRUG USE FOR UNKNOWN INDICATION
     Route: 048
     Dates: start: 20050323, end: 20050427

REACTIONS (6)
  - BLOOD CREATINE PHOSPHOKINASE INCREASED [None]
  - DRUG INTERACTION [None]
  - HENOCH-SCHONLEIN PURPURA [None]
  - MYALGIA [None]
  - RASH [None]
  - RASH MACULO-PAPULAR [None]
